FAERS Safety Report 9054169 (Version 1)
Quarter: 2013Q1

REPORT INFORMATION
  Report Type: Spontaneous
  Country: US (occurrence: US)
  Receive Date: 20130208
  Receipt Date: 20130208
  Transmission Date: 20140127
  Serious: Yes (Other)
  Sender: FDA-Public Use
  Company Number: US-ROCHE-1187564

PATIENT
  Age: 13 None
  Sex: Male

DRUGS (3)
  1. ACCUTANE [Suspect]
     Indication: ACNE
     Route: 048
     Dates: start: 20060106, end: 20061012
  2. ACCUTANE [Suspect]
     Route: 048
     Dates: start: 20060420
  3. CLARAVIS [Suspect]
     Indication: ACNE
     Route: 065
     Dates: start: 200605, end: 200609

REACTIONS (8)
  - Inflammatory bowel disease [Unknown]
  - Crohn^s disease [Unknown]
  - Colitis ulcerative [Unknown]
  - Irritable bowel syndrome [Unknown]
  - Epistaxis [Unknown]
  - Xerosis [Unknown]
  - Cheilitis [Unknown]
  - Blood triglycerides increased [Unknown]
